FAERS Safety Report 5709339-0 (Version None)
Quarter: 2008Q2

REPORT INFORMATION
  Report Type: 
  Country: None (occurrence: None)
  Receive Date: 20080418
  Receipt Date: 20080416
  Transmission Date: 20081010
  Serious: No
  Sender: FDA-Public Use
  Company Number: DE-ELI_LILLY_AND_COMPANY-DE200803000403

PATIENT
  Sex: Female

DRUGS (3)
  1. FORTEO [Suspect]
     Indication: OSTEOPOROSIS
     Dosage: 20 UG, UNKNOWN
     Route: 058
     Dates: start: 20070918
  2. CALCIUM [Concomitant]
     Dosage: UNK, UNKNOWN
  3. VITAMIN D [Concomitant]
     Dosage: UNK, UNKNOWN

REACTIONS (2)
  - ERYTHEMA [None]
  - HYPERSENSITIVITY [None]
